FAERS Safety Report 19283512 (Version 1)
Quarter: 2021Q2

REPORT INFORMATION
  Report Type: Spontaneous
  Country: US (occurrence: US)
  Receive Date: 20210521
  Receipt Date: 20210521
  Transmission Date: 20210717
  Serious: Yes (Disabling)
  Sender: FDA-Public Use
  Company Number: None

PATIENT
  Age: 43 Year
  Sex: Male
  Weight: 85.5 kg

DRUGS (3)
  1. DAILY MULTIVITAMIN [Concomitant]
     Active Substance: VITAMINS
  2. METRONIDAZOLE. [Suspect]
     Active Substance: METRONIDAZOLE
  3. CIPROFLOXACIN. [Suspect]
     Active Substance: CIPROFLOXACIN
     Indication: GASTRIC INFECTION
     Dosage: ?          QUANTITY:9 CAPSULE(S);?
     Route: 048
     Dates: start: 20210516, end: 20210520

REACTIONS (4)
  - Pain [None]
  - Vomiting [None]
  - Nausea [None]
  - Myalgia [None]

NARRATIVE: CASE EVENT DATE: 20210516
